FAERS Safety Report 15138489 (Version 2)
Quarter: 2018Q4

REPORT INFORMATION
  Report Type: Report from Study
  Country: US (occurrence: US)
  Receive Date: 20180713
  Receipt Date: 20181105
  Transmission Date: 20190204
  Serious: Yes (Hospitalization, Other)
  Sender: FDA-Public Use
  Company Number: US-ROCHE-2102835

PATIENT
  Age: 71 Year
  Sex: Female

DRUGS (1)
  1. COTELLIC [Suspect]
     Active Substance: COBIMETINIB
     Indication: COLON CANCER
     Route: 065
     Dates: start: 201712, end: 20180330

REACTIONS (12)
  - Decreased appetite [Unknown]
  - Diarrhoea [Unknown]
  - Rash [Unknown]
  - Off label use [Unknown]
  - Fatigue [Unknown]
  - Alopecia [Unknown]
  - Dyspepsia [Unknown]
  - Hypersomnia [Unknown]
  - Ill-defined disorder [Unknown]
  - Pneumonia [Not Recovered/Not Resolved]
  - Purulence [Unknown]
  - Intentional product use issue [Unknown]

NARRATIVE: CASE EVENT DATE: 201803
